FAERS Safety Report 5722687-3 (Version None)
Quarter: 2008Q2

REPORT INFORMATION
  Report Type: 
  Country: None (occurrence: None)
  Receive Date: 20080429
  Receipt Date: 20071012
  Transmission Date: 20081010
  Serious: No
  Sender: FDA-Public Use
  Company Number: US-ASTRAZENECA-2007UW19977

PATIENT
  Age: 69 Year
  Sex: Male
  Weight: 136.1 kg

DRUGS (19)
  1. NEXIUM [Suspect]
     Indication: GASTROOESOPHAGEAL REFLUX DISEASE
     Route: 048
     Dates: start: 20050101
  2. ACTOS [Concomitant]
  3. LASIX [Concomitant]
  4. PLAVIX [Concomitant]
  5. TOPROL-XL [Concomitant]
  6. IMDUR [Concomitant]
  7. MODURETIC 5-50 [Concomitant]
  8. MICRO-K [Concomitant]
  9. NEURONTIN [Concomitant]
  10. ZAROXOLYN [Concomitant]
  11. MAGNESIUM OXIDE [Concomitant]
  12. COMBIVENT [Concomitant]
  13. NITRO PILLS [Concomitant]
  14. ASPIRIN [Concomitant]
  15. CALCIUM [Concomitant]
  16. CO-Q10 [Concomitant]
  17. VENOSTAT [Concomitant]
  18. VITAMIN CAP [Concomitant]
  19. TYLENOL [Concomitant]

REACTIONS (2)
  - DYSPHONIA [None]
  - GASTROOESOPHAGEAL REFLUX DISEASE [None]
